FAERS Safety Report 10166522 (Version 2)
Quarter: 2014Q2

REPORT INFORMATION
  Report Type: Spontaneous
  Country: NL (occurrence: None)
  Receive Date: 20140508
  Receipt Date: 20140516
  Transmission Date: 20141212
  Serious: Yes (Death, Hospitalization)
  Sender: FDA-Public Use
  Company Number: 2014P1003239

PATIENT
  Age: 33 Year
  Sex: Male

DRUGS (1)
  1. RISPERIDONE [Suspect]
     Dosage: UNKNOWN, UNKNOWN

REACTIONS (12)
  - Hyponatraemia [None]
  - Brain oedema [None]
  - Abnormal behaviour [None]
  - Epilepsy [None]
  - Urinary incontinence [None]
  - Coma [None]
  - Blood creatinine increased [None]
  - Polydipsia psychogenic [None]
  - Inappropriate antidiuretic hormone secretion [None]
  - Pulmonary oedema [None]
  - Blood glucose increased [None]
  - Blood potassium decreased [None]
